FAERS Safety Report 25351054 (Version 1)
Quarter: 2025Q2

REPORT INFORMATION
  Report Type: Report from Study
  Country: US (occurrence: US)
  Receive Date: 20250523
  Receipt Date: 20250523
  Transmission Date: 20250717
  Serious: Yes (Other)
  Sender: ROCHE
  Company Number: US-ROCHE-10000283195

PATIENT
  Age: 62 Year
  Sex: Female

DRUGS (26)
  1. XOLAIR [Suspect]
     Active Substance: OMALIZUMAB
     Indication: Idiopathic urticaria
     Dosage: MORE DOSAGE INFORMATION IS 150 MG PREFILLED SYRINGE
     Route: 058
  2. XOLAIR [Suspect]
     Active Substance: OMALIZUMAB
  3. EPINEPHRINE [Concomitant]
     Active Substance: EPINEPHRINE
     Dates: start: 20250429
  4. EPINEPHRINE [Concomitant]
     Active Substance: EPINEPHRINE
     Dates: start: 20201014
  5. ACETAMINOPHEN [Concomitant]
     Active Substance: ACETAMINOPHEN
     Route: 048
  6. CALCITRIOL [Concomitant]
     Active Substance: CALCITRIOL
     Dosage: 0.25 MCG
     Route: 048
     Dates: start: 20241105
  7. CETIRIZINE HYDROCHLORIDE [Concomitant]
     Active Substance: CETIRIZINE HYDROCHLORIDE
     Route: 048
     Dates: start: 20190307
  8. DICLOFENAC [Concomitant]
     Active Substance: DICLOFENAC
     Route: 062
     Dates: start: 20181206
  9. ERENUMAB [Concomitant]
     Active Substance: ERENUMAB
     Route: 058
     Dates: start: 20230223
  10. ESTRADIOL [Concomitant]
     Active Substance: ESTRADIOL
     Route: 048
     Dates: start: 20250428
  11. PREMARIN [Concomitant]
     Active Substance: ESTROGENS, CONJUGATED
     Dates: start: 20241107
  12. FLUOROURACIL [Concomitant]
     Active Substance: FLUOROURACIL
     Dates: start: 20220616
  13. GABAPENTIN [Concomitant]
     Active Substance: GABAPENTIN
     Route: 048
  14. HYDROCHLOROTHIAZIDE [Concomitant]
     Active Substance: HYDROCHLOROTHIAZIDE
     Route: 048
     Dates: start: 20241105
  15. HYDROCODONE [Concomitant]
     Active Substance: HYDROCODONE
     Route: 048
  16. ACETAMINOPHEN [Concomitant]
     Active Substance: ACETAMINOPHEN
     Route: 048
  17. LORAZEPAM [Concomitant]
     Active Substance: LORAZEPAM
     Route: 048
     Dates: start: 20190501
  18. LOSARTAN [Concomitant]
     Active Substance: LOSARTAN
     Route: 048
     Dates: start: 20241105
  19. MELOXICAM [Concomitant]
     Active Substance: MELOXICAM
     Route: 048
     Dates: start: 20241219
  20. METOPROLOL SUCCINATE [Concomitant]
     Active Substance: METOPROLOL SUCCINATE
     Route: 048
     Dates: start: 20241219, end: 20250429
  21. MOMETASONE [Concomitant]
     Active Substance: MOMETASONE
     Dates: start: 20230611
  22. OXYBUTYNIN [Concomitant]
     Active Substance: OXYBUTYNIN
     Route: 048
     Dates: start: 20241105
  23. SUMATRIPTAN [Concomitant]
     Active Substance: SUMATRIPTAN
     Route: 048
  24. TIRZEPATIDE [Concomitant]
     Active Substance: TIRZEPATIDE
     Route: 058
     Dates: start: 20250403
  25. TIZANIDINE [Concomitant]
     Active Substance: TIZANIDINE
     Route: 048
     Dates: start: 20241105
  26. TRIAMCINOLONE [Concomitant]
     Active Substance: TRIAMCINOLONE
     Dates: start: 20231127

REACTIONS (26)
  - Idiopathic angioedema [Unknown]
  - Abdominal pain [Unknown]
  - Anaphylactic reaction [Unknown]
  - Microcytic anaemia [Unknown]
  - Off label use [Unknown]
  - Pain [Unknown]
  - Claustrophobia [Unknown]
  - Dyspnoea [Unknown]
  - Ear pain [Unknown]
  - Gastroenteritis [Unknown]
  - Hypocalcaemia [Unknown]
  - Ingrowing nail [Unknown]
  - Leukocytosis [Unknown]
  - Lymphadenopathy [Unknown]
  - Nephrolithiasis [Unknown]
  - Drug dependence [Unknown]
  - Flank pain [Unknown]
  - Obesity [Unknown]
  - Complex regional pain syndrome [Unknown]
  - Muscle spasms [Unknown]
  - Atrophic vulvovaginitis [Unknown]
  - Pain in extremity [Unknown]
  - Nasal dryness [Unknown]
  - Vertigo [Unknown]
  - Neurofibrosarcoma [Unknown]
  - Selective polysaccharide antibody deficiency [Unknown]
